FAERS Safety Report 10456558 (Version 1)
Quarter: 2014Q3

REPORT INFORMATION
  Report Type: Spontaneous
  Country: US (occurrence: US)
  Receive Date: 20140916
  Receipt Date: 20140916
  Transmission Date: 20150326
  Serious: No
  Sender: FDA-Public Use
  Company Number: US-BAYER-2014-126279

PATIENT
  Age: 79 Year
  Sex: Female
  Weight: 68.9 kg

DRUGS (4)
  1. ADEMPAS [Suspect]
     Active Substance: RIOCIGUAT
     Indication: PRODUCT USED FOR UNKNOWN INDICATION
     Dosage: 2 MG, TID
  2. TRACLEER [Concomitant]
     Active Substance: BOSENTAN\BOSENTAN MONOHYDRATE
  3. TYVASO [Suspect]
     Active Substance: TREPROSTINIL
     Indication: PULMONARY ARTERIAL HYPERTENSION
     Dosage: 18-72 MICROGRAMS
     Route: 045
     Dates: start: 20120726
  4. COUMADIN [Concomitant]
     Active Substance: WARFARIN SODIUM

REACTIONS (7)
  - Dyspnoea exertional [Unknown]
  - Headache [Not Recovered/Not Resolved]
  - Neck pain [None]
  - Constipation [Unknown]
  - Dyspnoea [None]
  - Flushing [Not Recovered/Not Resolved]
  - Oedema peripheral [Unknown]
